FAERS Safety Report 8304675-6 (Version None)
Quarter: 2012Q2

REPORT INFORMATION
  Report Type: 
  Country: None (occurrence: None)
  Receive Date: 20120423
  Receipt Date: 20120423
  Transmission Date: 20120825
  Serious: Yes (Death, Hospitalization)
  Sender: FDA-Public Use
  Company Number: PHHY2012DE025995

PATIENT
  Sex: Female
  Weight: 97 kg

DRUGS (4)
  1. DOXORUBICIN HCL [Concomitant]
     Indication: BREAST CANCER
     Dosage: 100 MG, DAILY
     Route: 042
     Dates: start: 20101220, end: 20101220
  2. ZOMETA [Suspect]
     Indication: BONE DISORDER
     Dosage: 4 MG, EVERY 4 WEEKS
     Route: 042
     Dates: start: 20100915
  3. ZOMETA [Suspect]
     Dosage: 4 MG, EVERY 4 WEEKS
     Route: 042
     Dates: start: 20110117
  4. TOPOTECAN [Concomitant]
     Indication: BREAST CANCER
     Dosage: 2.4 MG, DAILY
     Route: 042
     Dates: start: 20100920, end: 20101119

REACTIONS (8)
  - NEOPLASM PROGRESSION [None]
  - MALAISE [None]
  - ASCITES [None]
  - DYSPNOEA [None]
  - DYSPNOEA EXERTIONAL [None]
  - NAUSEA [None]
  - VOMITING [None]
  - GENERAL PHYSICAL HEALTH DETERIORATION [None]
